FAERS Safety Report 19568503 (Version 4)
Quarter: 2022Q3

REPORT INFORMATION
  Report Type: Report from Study
  Country: US (occurrence: US)
  Receive Date: 20210714
  Receipt Date: 20220704
  Transmission Date: 20221027
  Serious: No
  Sender: FDA-Public Use
  Company Number: NVSC2021US152914

PATIENT
  Sex: Female

DRUGS (1)
  1. ZOLGENSMA [Suspect]
     Active Substance: ONASEMNOGENE ABEPARVOVEC-XIOI
     Indication: Spinal muscular atrophy
     Dosage: 06.86 KG, ONCE/SINGLE
     Route: 042
     Dates: start: 20210701, end: 20210701

REACTIONS (3)
  - Gait disturbance [Unknown]
  - Pyrexia [Recovered/Resolved]
  - Hepatic enzyme increased [Unknown]
